FAERS Safety Report 9687502 (Version 2)
Quarter: 2015Q2

REPORT INFORMATION
  Report Type: Spontaneous
  Country: FR (occurrence: FR)
  Receive Date: 20131114
  Receipt Date: 20150602
  Transmission Date: 20150821
  Serious: Yes (Hospitalization)
  Sender: FDA-Public Use
  Company Number: PHHY2013FR126982

PATIENT
  Age: 82 Year
  Sex: Female

DRUGS (2)
  1. ENOXAPARIN SODIUM. [Suspect]
     Active Substance: ENOXAPARIN SODIUM
     Indication: THROMBOSIS PROPHYLAXIS
     Dosage: 40 MG, QD
     Route: 065
  2. HEPARIN [Suspect]
     Active Substance: HEPARIN SODIUM
     Indication: PRODUCT USED FOR UNKNOWN INDICATION
     Route: 042

REACTIONS (11)
  - Oliguria [Recovered/Resolved]
  - Adrenal haemorrhage [Recovered/Resolved]
  - Shock [Recovered/Resolved]
  - Adrenal insufficiency [Unknown]
  - Skin discolouration [Recovered/Resolved]
  - Abdominal pain [Recovered/Resolved]
  - Cardiogenic shock [Recovered/Resolved]
  - Pulmonary embolism [Recovered/Resolved]
  - Depressed level of consciousness [Recovered/Resolved]
  - Heparin-induced thrombocytopenia [Recovered/Resolved]
  - Thrombosis [Recovered/Resolved]
